FAERS Safety Report 15895227 (Version 2)
Quarter: 2019Q1

REPORT INFORMATION
  Report Type: Spontaneous
  Country: GB (occurrence: GB)
  Receive Date: 20190131
  Receipt Date: 20190318
  Transmission Date: 20190417
  Serious: Yes (Hospitalization)
  Sender: FDA-Public Use
  Company Number: GB-AMREGENT-20190133

PATIENT
  Age: 17 Year
  Sex: Female
  Weight: 43 kg

DRUGS (3)
  1. FERINJECT [Suspect]
     Active Substance: FERRIC CARBOXYMALTOSE
     Dosage: 930 MG
     Route: 042
     Dates: start: 20170928
  2. INFLIXIMAB [Concomitant]
     Active Substance: INFLIXIMAB
     Dosage: 6 IN 1 WEEK
     Route: 065
  3. AZATHIOPRINE. [Concomitant]
     Active Substance: AZATHIOPRINE
     Dosage: 1 IN 1 D
     Route: 065

REACTIONS (1)
  - Hypophosphataemia [Recovered/Resolved]

NARRATIVE: CASE EVENT DATE: 20170928
